FAERS Safety Report 14237758 (Version 2)
Quarter: 2018Q1

REPORT INFORMATION
  Report Type: Spontaneous
  Country: US (occurrence: US)
  Receive Date: 20171130
  Receipt Date: 20180226
  Transmission Date: 20180508
  Serious: No
  Sender: FDA-Public Use
  Company Number: US-ASTRAZENECA-2017SF19458

PATIENT
  Age: 31889 Day
  Sex: Female
  Weight: 117.5 kg

DRUGS (13)
  1. NEURONTIN [Concomitant]
     Active Substance: GABAPENTIN
  2. APRESOLINE HYDROCHLORIDE [Concomitant]
     Active Substance: HYDRALAZINE HYDROCHLORIDE
     Dosage: THREE 25MG THREE TIMES A DAY
  3. ATORVASTATIN [Concomitant]
     Active Substance: ATORVASTATIN
  4. CATAPRES [Concomitant]
     Active Substance: CLONIDINE HYDROCHLORIDE
     Dosage: 0.1 TWO TIMES A DAY
  5. SYMBICORT [Suspect]
     Active Substance: BUDESONIDE\FORMOTEROL FUMARATE DIHYDRATE
     Indication: CHRONIC OBSTRUCTIVE PULMONARY DISEASE
     Dosage: 160-4.5 MCG 2 PUFFS TWICE A DAY
     Route: 055
     Dates: start: 201702
  6. COREG [Concomitant]
     Active Substance: CARVEDILOL
     Dosage: 12.5MG A HALF OF A TAB TWO TIMES A DAY
     Route: 048
  7. ALBUTEROL. [Concomitant]
     Active Substance: ALBUTEROL
     Dosage: 2 PUFFS FOUR TIMES PER DAY AS REQUIRED
     Route: 055
  8. FLONASE [Concomitant]
     Active Substance: FLUTICASONE PROPIONATE
     Dosage: 2 SPRAYS EACH NOSTRIL DAILY
     Route: 045
  9. SYNTHROID [Concomitant]
     Active Substance: LEVOTHYROXINE SODIUM
  10. NIMODIPINE. [Concomitant]
     Active Substance: NIMODIPINE
  11. OMEPRAZOLE. [Suspect]
     Active Substance: OMEPRAZOLE
     Route: 048
  12. LASIX [Concomitant]
     Active Substance: FUROSEMIDE
  13. LANTUS [Concomitant]
     Active Substance: INSULIN GLARGINE

REACTIONS (2)
  - Dyspnoea [Not Recovered/Not Resolved]
  - Product quality issue [Unknown]

NARRATIVE: CASE EVENT DATE: 20171119
